FAERS Safety Report 6482322-6 (Version None)
Quarter: 2009Q4

REPORT INFORMATION
  Report Type: 
  Country: None (occurrence: None)
  Receive Date: 20091208
  Receipt Date: 20090420
  Transmission Date: 20100525
  Serious: No
  Sender: FDA-Public Use
  Company Number: US-AMGEN-TCS335519

PATIENT
  Sex: Female
  Weight: 85.4 kg

DRUGS (5)
  1. ENBREL [Suspect]
     Indication: RHEUMATOID ARTHRITIS
     Route: 058
     Dates: start: 20050718, end: 20080807
  2. QUININE [Suspect]
     Dates: start: 20050101, end: 20080601
  3. ALLOPURINOL [Concomitant]
  4. AMLODIPINE [Concomitant]
     Dates: start: 20080101
  5. TOPROL-XL [Concomitant]

REACTIONS (4)
  - CATARACT [None]
  - MUSCLE SPASMS [None]
  - RHEUMATOID ARTHRITIS [None]
  - THROMBOCYTOPENIA [None]
